FAERS Safety Report 15046144 (Version 1)
Quarter: 2018Q2

REPORT INFORMATION
  Report Type: Spontaneous
  Country: ZA (occurrence: ZA)
  Receive Date: 20180621
  Receipt Date: 20180621
  Transmission Date: 20180711
  Serious: Yes (Other)
  Sender: FDA-Public Use
  Company Number: ZA-PFIZER INC-2018248328

PATIENT
  Age: 79 Year
  Sex: Female

DRUGS (3)
  1. ELTROXIN [Suspect]
     Active Substance: LEVOTHYROXINE
     Dosage: 100 UG, UNK
  2. ASPAVOR [Suspect]
     Active Substance: ATORVASTATIN
     Dosage: 10 MG, UNK
  3. PANTOCID (PANTOPRAZOLE SODIUM SESQUIHYDRATE) [Suspect]
     Active Substance: PANTOPRAZOLE SODIUM
     Dosage: 20 MG, UNK

REACTIONS (1)
  - Deafness [Not Recovered/Not Resolved]
